FAERS Safety Report 4380308-9 (Version None)
Quarter: 2004Q2

REPORT INFORMATION
  Report Type: 
  Country: None (occurrence: None)
  Receive Date: 20040616
  Receipt Date: 20040616
  Transmission Date: 20050107
  Serious: No
  Sender: FDA-Public Use
  Company Number: None

PATIENT
  Age: 55 Year
  Sex: Female
  Weight: 72.1219 kg

DRUGS (8)
  1. ARAVA [Suspect]
     Indication: ARTHRITIS
     Dosage: 20 MG ONE QD ORAL
     Route: 048
     Dates: start: 20031101, end: 20040420
  2. PLAQUENIL [Concomitant]
  3. CELEBREX [Concomitant]
  4. DOXEPIN HCL [Concomitant]
  5. VALERIAN ROOT [Concomitant]
  6. ULTRACET [Concomitant]
  7. SEREVENT [Concomitant]
  8. PRILOSEC [Concomitant]

REACTIONS (1)
  - PERIODONTAL DISEASE [None]
